FAERS Safety Report 5833101-1 (Version None)
Quarter: 2008Q3

REPORT INFORMATION
  Report Type: 
  Country: None (occurrence: None)
  Receive Date: 20080804
  Receipt Date: 20080804
  Transmission Date: 20090109
  Serious: No
  Sender: FDA-Public Use
  Company Number: None

PATIENT
  Age: 72 Year
  Sex: Male
  Weight: 83.0083 kg

DRUGS (1)
  1. ASPIRIN [Suspect]
     Indication: TOOTH EXTRACTION
     Dates: start: 20080710

REACTIONS (1)
  - DRUG INEFFECTIVE [None]
